FAERS Safety Report 6425589-2 (Version None)
Quarter: 2009Q4

REPORT INFORMATION
  Report Type: 
  Country: None (occurrence: None)
  Receive Date: 20091103
  Receipt Date: 20091008
  Transmission Date: 20100525
  Serious: Yes (Hospitalization)
  Sender: FDA-Public Use
  Company Number: DK-PFIZER INC-2009280841

PATIENT
  Age: 40 Year
  Sex: Male

DRUGS (2)
  1. SALAZOPYRIN [Suspect]
     Indication: POLYARTHRITIS
     Dosage: UNK
     Dates: start: 20070209, end: 20070327
  2. SALAZOPYRIN [Suspect]
     Dosage: UNK
     Dates: start: 20070409, end: 20070101

REACTIONS (2)
  - DYSPNOEA [None]
  - LOEFFLER'S SYNDROME [None]
